FAERS Safety Report 12817726 (Version 2)
Quarter: 2017Q4

REPORT INFORMATION
  Report Type: Report from Study
  Country: US (occurrence: US)
  Receive Date: 20161005
  Receipt Date: 20171004
  Transmission Date: 20180320
  Serious: No
  Sender: FDA-Public Use
  Company Number: US-AMGEN-USASL2016127223

PATIENT
  Age: 70 Year
  Sex: Female

DRUGS (11)
  1. PAXIL [Concomitant]
     Active Substance: PAROXETINE HYDROCHLORIDE
     Dosage: 20 MG, QD
     Route: 048
     Dates: start: 20150804
  2. OMEPRAZOLE. [Concomitant]
     Active Substance: OMEPRAZOLE
     Dosage: 40 MG, QD
     Route: 048
     Dates: start: 201506
  3. SEROQUEL [Concomitant]
     Active Substance: QUETIAPINE FUMARATE
     Dosage: 100 MG, QD
     Route: 048
     Dates: start: 20150804
  4. PROLIA [Suspect]
     Active Substance: DENOSUMAB
     Indication: BONE DISORDER
     Dosage: 60 MG/ML, Q6MO
     Route: 065
     Dates: start: 20150804
  5. CALCIUM WITH VITAMIN D [Concomitant]
     Active Substance: CALCIUM\VITAMIN D
     Dosage: CALCIUM 1000 MG WITH VIT D 800, QD
  6. PROLIA [Suspect]
     Active Substance: DENOSUMAB
     Indication: OSTEOPOROSIS POSTMENOPAUSAL
  7. VASOTEC [Concomitant]
     Active Substance: ENALAPRIL MALEATE
     Dosage: 10 MG, TID
     Route: 048
     Dates: start: 20150804
  8. CRESTOR [Concomitant]
     Active Substance: ROSUVASTATIN CALCIUM
     Dosage: 10 MG, (20 MG HALF TABLET AT BEDTIME)
     Route: 048
     Dates: start: 20150804
  9. ZANTAC [Concomitant]
     Active Substance: RANITIDINE HYDROCHLORIDE
     Dosage: 150 MG, BID
     Route: 048
     Dates: start: 20150310
  10. LASIX [Concomitant]
     Active Substance: FUROSEMIDE
     Dosage: 40 MG, QD
     Route: 048
     Dates: start: 20150804
  11. CLONAZEPAM. [Concomitant]
     Active Substance: CLONAZEPAM
     Dosage: 0.5 MG, BID
     Route: 048
     Dates: start: 20150804

REACTIONS (1)
  - Off label use [Unknown]
